FAERS Safety Report 5012316-9 (Version None)
Quarter: 2006Q2

REPORT INFORMATION
  Report Type: 
  Country: None (occurrence: None)
  Receive Date: 20060525
  Receipt Date: 20060525
  Transmission Date: 20061013
  Serious: No
  Sender: FDA-Public Use
  Company Number: None

PATIENT
  Age: 8 Year
  Sex: Male
  Weight: 50.8029 kg

DRUGS (9)
  1. TRILEPTAL [Suspect]
     Indication: ATTENTION DEFICIT/HYPERACTIVITY DISORDER
     Dosage: ORAL 300 MG TWICE DAILY; 600 TWICE DAILY
     Route: 048
     Dates: start: 20060505, end: 20060515
  2. TRILEPTAL [Suspect]
     Indication: BIPOLAR I DISORDER
     Dosage: ORAL 300 MG TWICE DAILY; 600 TWICE DAILY
     Route: 048
     Dates: start: 20060505, end: 20060515
  3. TRILEPTAL [Suspect]
     Indication: POST-TRAUMATIC STRESS DISORDER
     Dosage: ORAL 300 MG TWICE DAILY; 600 TWICE DAILY
     Route: 048
     Dates: start: 20060505, end: 20060515
  4. TRILEPTAL [Suspect]
     Indication: ATTENTION DEFICIT/HYPERACTIVITY DISORDER
     Dosage: ORAL 300 MG TWICE DAILY; 600 TWICE DAILY
     Route: 048
     Dates: start: 20060510
  5. TRILEPTAL [Suspect]
     Indication: BIPOLAR I DISORDER
     Dosage: ORAL 300 MG TWICE DAILY; 600 TWICE DAILY
     Route: 048
     Dates: start: 20060510
  6. TRILEPTAL [Suspect]
     Indication: POST-TRAUMATIC STRESS DISORDER
     Dosage: ORAL 300 MG TWICE DAILY; 600 TWICE DAILY
     Route: 048
     Dates: start: 20060510
  7. CONCERTA [Concomitant]
  8. SEOQUEL [Concomitant]
  9. LITHOBID [Concomitant]

REACTIONS (2)
  - RASH PAPULAR [None]
  - RASH PRURITIC [None]
